FAERS Safety Report 23214237 (Version 2)
Quarter: 2023Q4

REPORT INFORMATION
  Report Type: Spontaneous
  Country: SI (occurrence: SI)
  Receive Date: 20231121
  Receipt Date: 20231126
  Transmission Date: 20240109
  Serious: Yes (Hospitalization, Other)
  Sender: FDA-Public Use
  Company Number: None

PATIENT
  Age: 62 Year
  Sex: Female

DRUGS (10)
  1. YERVOY [Suspect]
     Active Substance: IPILIMUMAB
     Indication: Non-small cell lung cancer metastatic
     Dosage: STRENGHT: 5 MG/ML?DOSE: 70 MG
     Route: 042
     Dates: start: 20230822, end: 20230822
  2. YERVOY [Suspect]
     Active Substance: IPILIMUMAB
     Dosage: STRENGHT: 5 MG/ML?DOSE: 70 MG
     Route: 042
     Dates: start: 20231005, end: 20231005
  3. OPDIVO [Suspect]
     Active Substance: NIVOLUMAB
     Indication: Non-small cell lung cancer metastatic
     Dosage: STRENGHT: 10 MG/ML ?DOSE: 360 MG
     Route: 042
     Dates: start: 20230822, end: 20230822
  4. OPDIVO [Suspect]
     Active Substance: NIVOLUMAB
     Dosage: STRENGHT: 10 MG/ML ?DOSE: 360 MG
     Route: 042
     Dates: start: 20230913, end: 20230913
  5. OPDIVO [Suspect]
     Active Substance: NIVOLUMAB
     Dosage: STRENGHT: 10 MG/ML ?DOSE: 360 MG
     Route: 042
     Dates: start: 20231005, end: 20231005
  6. PEMETREXED [Suspect]
     Active Substance: PEMETREXED
     Indication: Non-small cell lung cancer metastatic
     Dosage: STRENGHT: 25 MG/ML?DOSE: 900MG
     Route: 042
     Dates: start: 20230822, end: 20230822
  7. PEMETREXED [Suspect]
     Active Substance: PEMETREXED
     Dosage: STRENGHT: 25 MG/ML ?DOSE: 900 MG
     Route: 042
     Dates: start: 20230913, end: 20230913
  8. CARBOPLATIN [Suspect]
     Active Substance: CARBOPLATIN
     Indication: Non-small cell lung cancer metastatic
     Dosage: STRENGHT: 10 MG/ML ?DOSE: 550 MG
     Route: 042
     Dates: start: 20230822, end: 20230822
  9. CARBOPLATIN [Suspect]
     Active Substance: CARBOPLATIN
     Dosage: STRENGHT: 10 MG/ML ?DOSE: 550 MG
     Route: 042
     Dates: start: 20230913, end: 20230913
  10. FOLIC ACID [Concomitant]
     Active Substance: FOLIC ACID
     Dosage: 2X1
     Route: 048

REACTIONS (3)
  - Cytokine release syndrome [Recovering/Resolving]
  - Urinary tract infection bacterial [Unknown]
  - Proteus infection [Unknown]

NARRATIVE: CASE EVENT DATE: 20231001
